FAERS Safety Report 11457387 (Version 17)
Quarter: 2016Q4

REPORT INFORMATION
  Report Type: Report from Study
  Country: CA (occurrence: CA)
  Receive Date: 20150904
  Receipt Date: 20161220
  Transmission Date: 20170206
  Serious: Yes (Death, Hospitalization, Other)
  Sender: FDA-Public Use
  Company Number: CA-ROCHE-1287129

PATIENT
  Age: 81 Year
  Sex: Female
  Weight: 85 kg

DRUGS (5)
  1. ACTEMRA [Suspect]
     Active Substance: TOCILIZUMAB
     Indication: RHEUMATOID ARTHRITIS
     Route: 042
     Dates: start: 20130911
  2. ACTEMRA [Suspect]
     Active Substance: TOCILIZUMAB
     Route: 042
     Dates: start: 20150512, end: 20160722
  3. COUMADIN [Suspect]
     Active Substance: WARFARIN SODIUM
     Indication: ANTICOAGULANT THERAPY
     Route: 065
  4. ACTEMRA [Suspect]
     Active Substance: TOCILIZUMAB
     Route: 042
     Dates: start: 20131112
  5. ACTEMRA [Suspect]
     Active Substance: TOCILIZUMAB
     Route: 042
     Dates: start: 20150331

REACTIONS (29)
  - Coagulopathy [Fatal]
  - Peripheral swelling [Unknown]
  - Arthralgia [Unknown]
  - Varicose vein ruptured [Unknown]
  - Thrombosis [Not Recovered/Not Resolved]
  - Jaundice [Unknown]
  - Heart rate decreased [Unknown]
  - Weight increased [Unknown]
  - Blood pressure increased [Not Recovered/Not Resolved]
  - Blood pressure decreased [Unknown]
  - Blood pressure fluctuation [Unknown]
  - Infection [Unknown]
  - Deep vein thrombosis [Unknown]
  - Lower respiratory tract infection [Unknown]
  - Pain in extremity [Unknown]
  - Ear infection [Not Recovered/Not Resolved]
  - Hypotension [Unknown]
  - Blood pressure abnormal [Not Recovered/Not Resolved]
  - Heart rate decreased [Unknown]
  - Sinusitis [Unknown]
  - Cardiac arrest [Fatal]
  - Nasopharyngitis [Unknown]
  - Localised infection [Unknown]
  - Muscle spasms [Not Recovered/Not Resolved]
  - Infusion related reaction [Unknown]
  - Deep vein thrombosis [Fatal]
  - Fall [Unknown]
  - Haemoglobin decreased [Unknown]
  - Cyst [Recovered/Resolved]

NARRATIVE: CASE EVENT DATE: 20131112
